FAERS Safety Report 8123967-7 (Version None)
Quarter: 2012Q1

REPORT INFORMATION
  Report Type: 
  Country: None (occurrence: None)
  Receive Date: 20120209
  Receipt Date: 20120203
  Transmission Date: 20120608
  Serious: Yes (Death)
  Sender: FDA-Public Use
  Company Number: US-CELGENEUS-163-21880-12020547

PATIENT
  Sex: Female

DRUGS (7)
  1. VITAMIN D [Concomitant]
     Route: 065
  2. DULCOLAX [Concomitant]
     Route: 065
  3. LISINOPRIL [Concomitant]
     Route: 065
  4. NIFEDIPINE [Concomitant]
     Route: 065
  5. DEXAMETHASONE [Concomitant]
     Route: 065
  6. REVLIMID [Suspect]
     Dosage: 25 MILLIGRAM
     Route: 048
     Dates: start: 20111213
  7. ZOCOR [Concomitant]
     Route: 065

REACTIONS (1)
  - DEATH [None]
